FAERS Safety Report 5164529-3 (Version None)
Quarter: 2006Q4

REPORT INFORMATION
  Report Type: 
  Country: None (occurrence: None)
  Receive Date: 20061124
  Receipt Date: 20061113
  Transmission Date: 20070319
  Serious: Yes (Hospitalization)
  Sender: FDA-Public Use
  Company Number: 2006PV025074

PATIENT
  Age: 69 Year
  Sex: Female

DRUGS (3)
  1. BYETTA [Suspect]
     Indication: DIABETES MELLITUS NON-INSULIN-DEPENDENT
     Dosage: 5 MCG BID SC
     Route: 058
     Dates: start: 20061013, end: 20061109
  2. METFORMIN [Concomitant]
  3. AVANDIA [Concomitant]

REACTIONS (5)
  - ANOREXIA [None]
  - BREAST CANCER [None]
  - COLITIS ISCHAEMIC [None]
  - INFLUENZA LIKE ILLNESS [None]
  - NAUSEA [None]
